FAERS Safety Report 22034780 (Version 1)
Quarter: 2023Q1

REPORT INFORMATION
  Report Type: Spontaneous
  Country: TR (occurrence: TR)
  Receive Date: 20230224
  Receipt Date: 20230224
  Transmission Date: 20230417
  Serious: Yes (Other)
  Sender: FDA-Public Use
  Company Number: TR-GLAXOSMITHKLINE-TR2023EME026572

PATIENT

DRUGS (2)
  1. VENTOLIN [Suspect]
     Active Substance: ALBUTEROL SULFATE
     Indication: Allergic bronchitis
     Dosage: UNK, 100 MCGX200DOZ INHALER NON-CFC
  2. FLUTICASONE PROPIONATE [Suspect]
     Active Substance: FLUTICASONE PROPIONATE
     Indication: Allergic bronchitis
     Dosage: UNK, 50

REACTIONS (3)
  - Choking [Unknown]
  - Skin discolouration [Unknown]
  - Product availability issue [Unknown]
